FAERS Safety Report 5098627-X (Version None)
Quarter: 2006Q3

REPORT INFORMATION
  Report Type: 
  Country: None (occurrence: None)
  Receive Date: 20060906
  Receipt Date: 20060317
  Transmission Date: 20061208
  Serious: No
  Sender: FDA-Public Use
  Company Number: US-GLAXOSMITHKLINE-A0598052A

PATIENT
  Age: 75 Year
  Sex: Male

DRUGS (15)
  1. REQUIP [Suspect]
     Indication: RESTLESS LEGS SYNDROME
     Dosage: .5MG PER DAY
     Route: 048
     Dates: start: 20060314
  2. PROTONIX [Concomitant]
  3. HYDROCHLOROTHIAZIDE [Concomitant]
  4. COREG [Concomitant]
  5. KLOR-CON [Concomitant]
  6. ALLOPURINOL [Concomitant]
  7. AVAPRO [Concomitant]
  8. AVANDIA [Concomitant]
  9. LANOXIN [Concomitant]
  10. WARFARIN SODIUM [Concomitant]
  11. NORVASC [Concomitant]
  12. TERAZOSIN HCL [Concomitant]
  13. ZETIA [Concomitant]
  14. OMEGA FISH OIL [Concomitant]
  15. GEMFIBROZIL [Concomitant]

REACTIONS (1)
  - ILL-DEFINED DISORDER [None]
